FAERS Safety Report 21410331 (Version 1)
Quarter: 2022Q4

REPORT INFORMATION
  Report Type: Report from Study
  Country: US (occurrence: US)
  Receive Date: 20221005
  Receipt Date: 20221005
  Transmission Date: 20230112
  Serious: No
  Sender: FDA-Public Use
  Company Number: US-ABBVIE-4134627

PATIENT
  Sex: Female

DRUGS (4)
  1. RINVOQ [Suspect]
     Active Substance: UPADACITINIB
     Indication: Psoriatic arthropathy
     Route: 048
  2. Pfizer/BioNTech covid-19 [Concomitant]
     Indication: COVID-19 immunisation
     Dosage: 1 IN ONCE SECOND DOSE
     Route: 030
     Dates: start: 20210330, end: 20210330
  3. Pfizer/BioNTech covid-19 [Concomitant]
     Indication: COVID-19 immunisation
     Dosage: 1 IN ONCE; FIRST DOSE
     Route: 030
     Dates: start: 20210304, end: 20210304
  4. Pfizer/BioNTech covid-19 [Concomitant]
     Indication: COVID-19 immunisation
     Dosage: 1 IN ONCE (THIRD DOSE)
     Route: 030
     Dates: start: 20211216, end: 20211216

REACTIONS (1)
  - Bursitis [Recovering/Resolving]
